FAERS Safety Report 9809493 (Version 3)
Quarter: 2014Q4

REPORT INFORMATION
  Report Type: Spontaneous
  Country: US (occurrence: US)
  Receive Date: 20140110
  Receipt Date: 20141229
  Transmission Date: 20150529
  Serious: Yes (Other)
  Sender: FDA-Public Use
  Company Number: US-SANOFI-AVENTIS-2011SA084867

PATIENT
  Age: 54 Year
  Sex: Female

DRUGS (3)
  1. PLAVIX [Suspect]
     Active Substance: CLOPIDOGREL BISULFATE
     Indication: CORONARY ARTERIAL STENT INSERTION
     Route: 065
     Dates: start: 20070616, end: 20110804
  2. ASPIRIN. [Suspect]
     Active Substance: ASPIRIN
     Route: 065
  3. BRILINTA [Concomitant]
     Active Substance: TICAGRELOR
     Dates: start: 201310

REACTIONS (8)
  - Dyspnoea [Unknown]
  - Gastrointestinal haemorrhage [Unknown]
  - Anaemia [Unknown]
  - Menorrhagia [Unknown]
  - Epistaxis [Unknown]
  - Haematochezia [Unknown]
  - Unevaluable event [Unknown]
  - Blood urine present [Unknown]

NARRATIVE: CASE EVENT DATE: 20110804
